FAERS Safety Report 24199448 (Version 1)
Quarter: 2024Q3

REPORT INFORMATION
  Report Type: Other
  Country: OM (occurrence: OM)
  Receive Date: 20240812
  Receipt Date: 20240812
  Transmission Date: 20241016
  Serious: Yes (Hospitalization, Other)
  Sender: APPCO PHARMA
  Company Number: OM-Appco Pharma LLC-2160292

PATIENT
  Age: 73 Year
  Sex: Female

DRUGS (1)
  1. BACLOFEN [Suspect]
     Active Substance: BACLOFEN
     Indication: Back pain
     Route: 048

REACTIONS (2)
  - Neurotoxicity [Recovered/Resolved]
  - Self-medication [Unknown]
